FAERS Safety Report 7179138-4 (Version None)
Quarter: 2010Q4

REPORT INFORMATION
  Report Type: 
  Country: None (occurrence: None)
  Receive Date: 20101221
  Receipt Date: 20101209
  Transmission Date: 20110411
  Serious: Yes (Other)
  Sender: FDA-Public Use
  Company Number: US-PFIZER INC-2010170329

PATIENT
  Sex: Female

DRUGS (2)
  1. ADVIL [Suspect]
     Indication: HEADACHE
     Dosage: 2 DF, 1X/DAY
     Route: 048
     Dates: start: 20101209
  2. REACTINE [Concomitant]
     Indication: URTICARIA

REACTIONS (3)
  - EYE SWELLING [None]
  - LIP SWELLING [None]
  - SWELLING FACE [None]
